FAERS Safety Report 4750189-X (Version None)
Quarter: 2005Q3

REPORT INFORMATION
  Report Type: 
  Country: None (occurrence: None)
  Receive Date: 20050818
  Receipt Date: 20050805
  Transmission Date: 20060218
  Serious: Yes (Other)
  Sender: FDA-Public Use
  Company Number: SUS1-2005-00601

PATIENT
  Age: 3 Year
  Sex: Male
  Weight: 20 kg

DRUGS (2)
  1. ADDERALL XR 10 [Suspect]
     Indication: DISTURBANCE IN ATTENTION
     Dosage: 10 MG IN THE AM
     Dates: start: 20050731, end: 20050804
  2. ADDERALL XR 10 [Suspect]
     Indication: PSYCHOMOTOR HYPERACTIVITY
     Dosage: 10 MG IN THE AM
     Dates: start: 20050731, end: 20050804

REACTIONS (3)
  - ABNORMAL DREAMS [None]
  - DRUG EFFECT DECREASED [None]
  - HALLUCINATION, VISUAL [None]
